FAERS Safety Report 14996894 (Version 1)
Quarter: 2018Q2

REPORT INFORMATION
  Report Type: Spontaneous
  Country: SI (occurrence: SI)
  Receive Date: 20180611
  Receipt Date: 20180611
  Transmission Date: 20180711
  Serious: Yes (Hospitalization)
  Sender: FDA-Public Use
  Company Number: SI-PFIZER INC-2018230629

PATIENT
  Age: 77 Year
  Sex: Female

DRUGS (14)
  1. RAWEL [Concomitant]
     Dosage: 1.5 MG, UNK
  2. ALVESCO [Concomitant]
     Active Substance: CICLESONIDE
     Dosage: 1 DF, DAILY
     Route: 055
  3. METHOTREXATE (METHOTREXATE SODIUM) [Suspect]
     Active Substance: METHOTREXATE SODIUM
     Dosage: 10 MG, WEEKLY
  4. COUPET [Concomitant]
     Active Substance: ROSUVASTATIN CALCIUM
     Dosage: 5 MG, UNK
  5. FOLACIN /00024201/ [Concomitant]
     Active Substance: FOLIC ACID
     Dosage: 2 DF, WEEKLY (ONE DAY AFTER MTX DOSE)
  6. XELJANZ [Suspect]
     Active Substance: TOFACITINIB CITRATE
     Indication: RHEUMATOID ARTHRITIS
     Dosage: 5 MG, 2X/DAY
     Dates: start: 20180521, end: 20180531
  7. ASPIRIN /00002701/ [Concomitant]
     Active Substance: ASPIRIN
     Dosage: 100 MG, UNK
  8. VALSACOR [Concomitant]
     Active Substance: VALSARTAN
     Dosage: 80 MG, 2X/DAY
  9. NEBILET [Concomitant]
     Active Substance: NEBIVOLOL
     Dosage: 2.5 MG, 2X/DAY
  10. NOLPAZA [Concomitant]
     Active Substance: PANTOPRAZOLE SODIUM
     Dosage: 40 MG, UNK
  11. PLIVIT D3 [Concomitant]
     Active Substance: CHOLECALCIFEROL
     Dosage: 35 GTT, WEEKLY
  12. HELEX [Concomitant]
     Active Substance: ALPRAZOLAM
     Dosage: AS NEEDED
  13. NALGESIN /00256202/ [Concomitant]
     Indication: PAIN
  14. PROLIA [Concomitant]
     Active Substance: DENOSUMAB
     Dosage: 60 MG, UNK

REACTIONS (2)
  - Diverticulitis [Unknown]
  - Deep vein thrombosis [Unknown]

NARRATIVE: CASE EVENT DATE: 20180531
